FAERS Safety Report 6736679-9 (Version None)
Quarter: 2010Q2

REPORT INFORMATION
  Report Type: 
  Country: None (occurrence: None)
  Receive Date: 20100521
  Receipt Date: 20100510
  Transmission Date: 20101027
  Serious: Yes (Hospitalization, Other)
  Sender: FDA-Public Use
  Company Number: PHHY2010CN30398

PATIENT
  Age: 3 Year
  Sex: Female

DRUGS (10)
  1. CYCLOSPORINE [Suspect]
     Indication: APLASTIC ANAEMIA
  2. ANDROGENS [Suspect]
  3. METHOTREXATE [Concomitant]
     Indication: PROPHYLAXIS AGAINST GRAFT VERSUS HOST DISEASE
  4. MYCOPHENOLATE MOFETIL [Concomitant]
     Indication: PROPHYLAXIS AGAINST GRAFT VERSUS HOST DISEASE
  5. BUSULFEX [Concomitant]
     Dosage: 4 MG/KG/DAY
  6. BASILIXIMAB [Concomitant]
     Indication: STEM CELL TRANSPLANT
     Dosage: 20 MG, ONCE/SINGLE
  7. BASILIXIMAB [Concomitant]
     Dosage: 20 MG, ONCE/SINGLE
  8. FLUDARABINE [Concomitant]
     Dosage: 30 MG/M^2/DAY
  9. CYCLOPHOSPHAMIDE [Concomitant]
     Dosage: 50 MG/KG/DAY
  10. ATG-FRESENIUS [Concomitant]
     Dosage: 5 MG/KG/DAY

REACTIONS (11)
  - APLASTIC ANAEMIA [None]
  - BLOOD PRODUCT TRANSFUSION DEPENDENT [None]
  - DRUG INEFFECTIVE [None]
  - FEBRILE NEUTROPENIA [None]
  - PYREXIA [None]
  - RESPIRATORY TRACT INFECTION [None]
  - RETICULOCYTE COUNT DECREASED [None]
  - RETICULOCYTE COUNT INCREASED [None]
  - STEM CELL TRANSPLANT [None]
  - VOMITING [None]
  - WHITE BLOOD CELL COUNT DECREASED [None]
